FAERS Safety Report 8733106 (Version 2)
Quarter: 2012Q4

REPORT INFORMATION
  Report Type: Report from Study
  Country: US (occurrence: US)
  Receive Date: 20120820
  Receipt Date: 20120913
  Transmission Date: 20130627
  Serious: Yes (Hospitalization)
  Sender: FDA-Public Use
  Company Number: US-PFIZER INC-2012198715

PATIENT
  Age: 65 Year
  Sex: Female
  Weight: 83.45 kg

DRUGS (15)
  1. FLUOROURACIL [Suspect]
     Indication: OESOPHAGEAL ADENOCARCINOMA
     Dosage: 400 mg/m2, cyclic, on Day 1 every 14 days
     Route: 040
     Dates: start: 20120726, end: 20120809
  2. FLUOROURACIL [Suspect]
     Dosage: 2400 mg/m2, over 46-48 hours, on Day 1 every 14 days
     Route: 042
     Dates: start: 20120726, end: 20120809
  3. OXALIPLATIN [Suspect]
     Indication: OESOPHAGEAL ADENOCARCINOMA
     Dosage: 85 mg/m2, cyclic, on Day 1 every 14 days
     Route: 042
     Dates: start: 20120726, end: 20120809
  4. UNSPECIFIED INGREDIENT [Suspect]
     Indication: OESOPHAGEAL ADENOCARCINOMA
     Dosage: on Day 1 every 14 days
     Route: 042
     Dates: start: 20120726, end: 20120809
  5. CALCIUM FOLINATE [Suspect]
     Indication: OESOPHAGEAL ADENOCARCINOMA
     Dosage: 400 mg/m2, cyclic, on Day 1 every 14 days
     Route: 042
     Dates: start: 20120726, end: 20120809
  6. TRAMADOL [Concomitant]
     Dosage: UNK
     Dates: start: 201206
  7. FERROUS FUMARATE/MINERALS NOS/VITAMINS NOS [Concomitant]
     Dosage: UNK
     Dates: start: 20120524
  8. AMBIEN [Concomitant]
     Dosage: UNK
     Dates: start: 2007
  9. XANAX [Concomitant]
     Dosage: UNK
     Dates: start: 2007
  10. SUDAFED [Concomitant]
     Dosage: UNK
     Dates: start: 201204
  11. COLACE [Concomitant]
     Dosage: UNK
     Dates: start: 20120524
  12. MIRALAX [Concomitant]
     Dosage: UNK
     Dates: start: 20120524
  13. PERCOCET [Concomitant]
     Dosage: UNK
     Dates: start: 20120713
  14. COMPAZINE [Concomitant]
     Dosage: UNK
     Dates: start: 20120726
  15. NEURONTIN [Concomitant]
     Dosage: UNK
     Dates: start: 201106

REACTIONS (12)
  - Pyrexia [Recovered/Resolved]
  - Headache [Recovered/Resolved]
  - Chills [None]
  - Nausea [None]
  - Diarrhoea [None]
  - Fatigue [None]
  - Blood alkaline phosphatase increased [None]
  - Aspartate aminotransferase increased [None]
  - Alanine aminotransferase increased [None]
  - Atelectasis [None]
  - Blood glucose increased [None]
  - Pleural effusion [None]
